FAERS Safety Report 9957907 (Version 2)
Quarter: 2014Q1

REPORT INFORMATION
  Report Type: Report from Study
  Country: US (occurrence: US)
  Receive Date: 20140304
  Receipt Date: 20140304
  Transmission Date: 20141002
  Serious: No
  Sender: FDA-Public Use
  Company Number: US-ABBVIE-13P-163-1065346-00

PATIENT
  Age: 51 Year
  Sex: Male

DRUGS (3)
  1. HUMIRA [Suspect]
     Indication: ERYTHRODERMIC PSORIASIS
     Dates: start: 20130215, end: 20130215
  2. HUMIRA [Suspect]
     Dates: start: 20130222
  3. UNKNOWN MEDICATIONS [Concomitant]
     Indication: PSORIASIS
     Route: 061

REACTIONS (1)
  - Drug ineffective [Not Recovered/Not Resolved]
